FAERS Safety Report 14933190 (Version 1)
Quarter: 2018Q2

REPORT INFORMATION
  Report Type: Report from Study
  Country: MX (occurrence: MX)
  Receive Date: 20180524
  Receipt Date: 20180524
  Transmission Date: 20180711
  Serious: Yes (Other)
  Sender: FDA-Public Use
  Company Number: PHHY2018MX001195

PATIENT
  Age: 37 Year
  Sex: Male

DRUGS (6)
  1. LITHIUM CARBONATE. [Concomitant]
     Active Substance: LITHIUM CARBONATE
     Indication: EMOTIONAL DISORDER
     Dosage: 300 MG, QD
     Route: 065
     Dates: start: 201801
  2. OLANZAPINE. [Concomitant]
     Active Substance: OLANZAPINE
     Indication: EMOTIONAL DISORDER
     Dosage: 10 MG, QD
     Route: 065
     Dates: start: 201801
  3. SERTRALINE [Suspect]
     Active Substance: SERTRALINE HYDROCHLORIDE
     Indication: EMOTIONAL DISORDER
     Dosage: 50 MG, QD
     Route: 065
     Dates: start: 201801
  4. COSENTYX [Suspect]
     Active Substance: SECUKINUMAB
     Indication: PSORIATIC ARTHROPATHY
     Dosage: 300 MG, QMO
     Route: 058
     Dates: start: 201801
  5. CLONAZEPAM. [Concomitant]
     Active Substance: CLONAZEPAM
     Indication: EMOTIONAL DISORDER
     Dosage: 2 MG, QD
     Route: 065
     Dates: start: 201801
  6. ARCOXIA [Concomitant]
     Active Substance: ETORICOXIB
     Indication: PSORIATIC ARTHROPATHY
     Dosage: 90 MG, QD
     Route: 065
     Dates: start: 201801

REACTIONS (5)
  - Blindness [Not Recovered/Not Resolved]
  - Psoriasis [Unknown]
  - Drug ineffective [Not Recovered/Not Resolved]
  - Arthralgia [Unknown]
  - Product use in unapproved indication [Unknown]

NARRATIVE: CASE EVENT DATE: 201801
